FAERS Safety Report 6016685-2 (Version None)
Quarter: 2008Q4

REPORT INFORMATION
  Report Type: 
  Country: None (occurrence: None)
  Receive Date: 20081222
  Receipt Date: 20081212
  Transmission Date: 20090506
  Serious: Yes (Other)
  Sender: FDA-Public Use
  Company Number: US-JNJCH-2008057388

PATIENT
  Age: 84 Year
  Sex: Female
  Weight: 54.4 kg

DRUGS (9)
  1. BENADRYL [Suspect]
     Indication: SLEEP DISORDER
     Dosage: TEXT:UNKNOWN DOSE PRN, THEN ON A DAILY BASIS
     Route: 048
  2. METOPROLOL TARTRATE [Concomitant]
     Indication: HYPERTENSION
     Dosage: TEXT:100MG A DAY
     Route: 065
  3. ARICEPT [Concomitant]
     Indication: DEMENTIA ALZHEIMER'S TYPE
     Dosage: TEXT:5MG A DAY
     Route: 065
  4. ZOLOFT [Concomitant]
     Indication: DEPRESSION
     Dosage: TEXT:50MG A DAY
     Route: 065
  5. TAMOXIFEN [Concomitant]
     Indication: NEOPLASM MALIGNANT
     Dosage: TEXT:20MG A DAY
     Route: 065
  6. ZOCOR [Concomitant]
     Indication: BLOOD CHOLESTEROL
     Dosage: TEXT:40MG A DAY
     Route: 065
  7. FOSAMAX [Concomitant]
     Indication: OSTEOPOROSIS
     Dosage: TEXT:70MG A WEEK
     Route: 065
  8. XALATAN [Concomitant]
     Indication: GLAUCOMA
     Dosage: TEXT:1 DROP PER EYE DAY
     Route: 047
  9. FOLTX [Concomitant]
     Indication: MEMORY IMPAIRMENT
     Dosage: TEXT:3 TABLETS A DAY
     Route: 048

REACTIONS (5)
  - BLOOD PRESSURE FLUCTUATION [None]
  - FATIGUE [None]
  - OFF LABEL USE [None]
  - SOMNOLENCE [None]
  - VISUAL IMPAIRMENT [None]
